FAERS Safety Report 9947947 (Version 2)
Quarter: 2014Q1

REPORT INFORMATION
  Report Type: Report from Study
  Country: US (occurrence: US)
  Receive Date: 20140303
  Receipt Date: 20140303
  Transmission Date: 20141002
  Serious: Yes (Hospitalization, Other)
  Sender: FDA-Public Use
  Company Number: US-ABBVIE-12P-163-1007458-00

PATIENT
  Age: 48 Year
  Sex: Female
  Weight: 57 kg

DRUGS (13)
  1. HUMIRA [Suspect]
     Indication: CROHN^S DISEASE
     Dates: start: 2010, end: 2011
  2. HUMIRA [Suspect]
     Dates: start: 201211, end: 20130201
  3. HUMIRA [Suspect]
     Dates: start: 20130201
  4. 6-MP [Concomitant]
     Indication: PRODUCT USED FOR UNKNOWN INDICATION
  5. 6-MP [Concomitant]
  6. VITAMIN D [Concomitant]
     Indication: PRODUCT USED FOR UNKNOWN INDICATION
  7. CALCIUM [Concomitant]
     Indication: PRODUCT USED FOR UNKNOWN INDICATION
  8. B12 SHOTS [Concomitant]
     Indication: PRODUCT USED FOR UNKNOWN INDICATION
  9. IRON PILLS [Concomitant]
     Indication: PRODUCT USED FOR UNKNOWN INDICATION
  10. PERCOCET [Concomitant]
     Indication: PAIN
     Dosage: 5/325
  11. IMURAN [Concomitant]
     Indication: CROHN^S DISEASE
  12. RIFAXIMIN [Concomitant]
     Indication: PRODUCT USED FOR UNKNOWN INDICATION
  13. FOSAMAX [Concomitant]
     Indication: PRODUCT USED FOR UNKNOWN INDICATION

REACTIONS (9)
  - Anal abscess [Recovering/Resolving]
  - Perirectal abscess [Recovering/Resolving]
  - Pain [Not Recovered/Not Resolved]
  - Anal abscess [Not Recovered/Not Resolved]
  - Proctalgia [Not Recovered/Not Resolved]
  - Anal abscess [Not Recovered/Not Resolved]
  - Injection site vesicles [Recovered/Resolved]
  - Osteoporosis [Not Recovered/Not Resolved]
  - Crohn^s disease [Not Recovered/Not Resolved]
